FAERS Safety Report 10790710 (Version 1)
Quarter: 2015Q1

REPORT INFORMATION
  Report Type: Spontaneous
  Country: BR (occurrence: BR)
  Receive Date: 20150212
  Receipt Date: 20150212
  Transmission Date: 20150721
  Serious: Yes (Hospitalization)
  Sender: FDA-Public Use
  Company Number: BR-PFIZER INC-2015020847

PATIENT
  Age: 42 Year
  Sex: Female

DRUGS (3)
  1. CELEBRA [Suspect]
     Active Substance: CELECOXIB
     Indication: ARTHROPATHY
     Dosage: 200 UNK, UNK
     Dates: start: 2014
  2. CELEBRA [Suspect]
     Active Substance: CELECOXIB
     Indication: SPINAL PAIN
     Dosage: 200 MG, 1X/DAY
     Dates: start: 2013
  3. CELEBRA [Suspect]
     Active Substance: CELECOXIB
     Indication: MUSCULOSKELETAL DISORDER

REACTIONS (4)
  - Drug ineffective [Not Recovered/Not Resolved]
  - Condition aggravated [Recovered/Resolved]
  - Intervertebral disc protrusion [Recovered/Resolved]
  - Exostosis [Recovered/Resolved]

NARRATIVE: CASE EVENT DATE: 2013
